FAERS Safety Report 19021353 (Version 1)
Quarter: 2021Q1

REPORT INFORMATION
  Report Type: Spontaneous
  Country: CN (occurrence: CN)
  Receive Date: 20210317
  Receipt Date: 20210317
  Transmission Date: 20210420
  Serious: Yes (Hospitalization)
  Sender: FDA-Public Use
  Company Number: CN-SA-2021SA068592

PATIENT
  Sex: Female

DRUGS (7)
  1. METHYCOBAL [Concomitant]
     Active Substance: METHYLCOBALAMIN
     Dosage: 1 DF, TID
     Route: 065
  2. POLYENE PHOSPHATIDYLCHOLINE [Concomitant]
     Active Substance: PHOSPHOLIPID
     Indication: HEPATIC CIRRHOSIS
     Dosage: 2 DF, TID
     Route: 065
  3. LANTUS SOLOSTAR [Suspect]
     Active Substance: INSULIN GLARGINE
     Indication: DIABETES MELLITUS
     Dosage: 30 IU, QD
     Route: 065
  4. TENOFOVIR DISOPROXIL FUMARATE. [Concomitant]
     Active Substance: TENOFOVIR DISOPROXIL FUMARATE
     Dosage: 1 DF, QD
     Route: 065
  5. NOVORAPID [Concomitant]
     Active Substance: INSULIN ASPART
     Dosage: 17 IU, TID
     Route: 065
  6. FURSULTIAMINE [Concomitant]
     Active Substance: FURSULTIAMINE
     Indication: HEPATIC CIRRHOSIS
     Dosage: 2 DF, TID
     Route: 065
  7. LEUCOGEN [Concomitant]
     Active Substance: LEUCOGEN
     Dosage: 2 DF, TID
     Route: 065

REACTIONS (5)
  - Blood glucose increased [Recovering/Resolving]
  - Erythema [Recovering/Resolving]
  - Condition aggravated [Recovering/Resolving]
  - Peripheral swelling [Recovering/Resolving]
  - Ulcer [Recovering/Resolving]

NARRATIVE: CASE EVENT DATE: 2020
